FAERS Safety Report 11279525 (Version 1)
Quarter: 2015Q3

REPORT INFORMATION
  Report Type: Spontaneous
  Country: US (occurrence: None)
  Receive Date: 20150716
  Receipt Date: 20150716
  Transmission Date: 20151125
  Serious: No
  Sender: FDA-Public Use
  Company Number: None

PATIENT
  Age: 14 Year
  Sex: Male

DRUGS (1)
  1. OMNITROPE [Suspect]
     Active Substance: SOMATROPIN
     Indication: BODY HEIGHT BELOW NORMAL
     Dosage: OMNITROPE 1.9 MG/DAY 6 DAYS/WK SUBQ
     Route: 058
     Dates: start: 20150618

REACTIONS (2)
  - Headache [None]
  - Seasonal allergy [None]

NARRATIVE: CASE EVENT DATE: 20150628
